FAERS Safety Report 21685060 (Version 2)
Quarter: 2023Q1

REPORT INFORMATION
  Report Type: Spontaneous
  Country: US (occurrence: US)
  Receive Date: 20221206
  Receipt Date: 20230110
  Transmission Date: 20230417
  Serious: Yes (Hospitalization)
  Sender: FDA-Public Use
  Company Number: US-BIOVITRUM-2022US14345

PATIENT
  Sex: Female
  Weight: 5 kg

DRUGS (20)
  1. SYNAGIS [Suspect]
     Active Substance: PALIVIZUMAB
     Indication: Double outlet right ventricle
     Dosage: 100 MG SDV/INJ PF 1 ML1^S
     Dates: start: 20220830
  2. MCT OIL [MEDIUM-CHAIN TRIGLYCERIDES] [Concomitant]
     Dosage: 7.7 KCAL/ML
  3. PEPCID AC [Concomitant]
     Active Substance: FAMOTIDINE
  4. ACETAMINOPHEN [Concomitant]
     Active Substance: ACETAMINOPHEN
     Dosage: 160 MG/5 ML ORAL SUSPENSION
  5. AMIODARONE HYDROCHLORIDE [Concomitant]
     Active Substance: AMIODARONE HYDROCHLORIDE
     Dosage: 50 MG/ML VIAL
  6. NEXIUM [Concomitant]
     Active Substance: ESOMEPRAZOLE MAGNESIUM
     Dosage: SUSPDR PKT
  7. GABAPENTIN [Concomitant]
     Active Substance: GABAPENTIN
     Dosage: 250 MG/5ML SOLUTION
  8. CAPTOPRIL [Concomitant]
     Active Substance: CAPTOPRIL
     Dosage: 100% POWDER
  9. FUROSEMIDE [Concomitant]
     Active Substance: FUROSEMIDE
     Dosage: 10 MG/ML SOLUTION
  10. SPIRONOLACTONE [Concomitant]
     Active Substance: SPIRONOLACTONE
  11. AMOXICILLIN [Concomitant]
     Active Substance: AMOXICILLIN
     Dosage: 250 MG/5 ML SUSP RECON
  12. PHENOBARBITAL [Concomitant]
     Active Substance: PHENOBARBITAL
     Dosage: 20 MG/5 ML ELIXIR
  13. LACTULOSE [Concomitant]
     Active Substance: LACTULOSE
     Dosage: 10 G/15 ML SOLUTION
  14. SIMETHICONE (DIMETHICONE) [Concomitant]
     Active Substance: DIMETHICONE
     Dosage: LIQUID
  15. ASPIRIN [Concomitant]
     Active Substance: ASPIRIN
     Dosage: CHEWABLE TABLET
  16. SYNAGIS [Suspect]
     Active Substance: PALIVIZUMAB
     Indication: Illness
  17. SYNAGIS [Suspect]
     Active Substance: PALIVIZUMAB
     Indication: Double outlet left ventricle
  18. SYNAGIS [Suspect]
     Active Substance: PALIVIZUMAB
     Indication: Pulmonary valve stenosis
  19. SYNAGIS [Suspect]
     Active Substance: PALIVIZUMAB
     Indication: Takayasu^s arteritis
  20. SYNAGIS [Suspect]
     Active Substance: PALIVIZUMAB
     Indication: Corrected transposition of great vessels

REACTIONS (1)
  - Pyrexia [Unknown]
